FAERS Safety Report 6108929-3 (Version None)
Quarter: 2009Q1

REPORT INFORMATION
  Report Type: 
  Country: None (occurrence: None)
  Receive Date: 20090306
  Receipt Date: 20090219
  Transmission Date: 20090719
  Serious: Yes (Other)
  Sender: FDA-Public Use
  Company Number: 2009020053

PATIENT
  Age: 43 Year
  Sex: Female
  Weight: 64.5 kg

DRUGS (14)
  1. TORSEMIDE [Suspect]
     Indication: ABDOMINAL DISCOMFORT
     Dosage: (40 MG AM AND 20MG IN THE AFTERNOON)
     Dates: start: 20080601
  2. TORSEMIDE [Suspect]
     Indication: FATIGUE
     Dosage: (40 MG AM AND 20MG IN THE AFTERNOON)
     Dates: start: 20080601
  3. WARFARIN SODIUM [Suspect]
     Indication: ANTICOAGULANT THERAPY
     Dosage: 7.5 MG (7.5 MG, 1 IN 1 D); (PER WEEK)
     Dates: start: 19930101
  4. WARFARIN SODIUM [Suspect]
     Indication: ATRIAL FIBRILLATION
     Dosage: 7.5 MG (7.5 MG, 1 IN 1 D); (PER WEEK)
     Dates: start: 19930101
  5. WARFARIN SODIUM [Suspect]
     Indication: MITRAL VALVE REPLACEMENT
     Dosage: 7.5 MG (7.5 MG, 1 IN 1 D); (PER WEEK)
     Dates: start: 19930101
  6. ASCORBIC ACID [Concomitant]
  7. FERROUS SULFATE TAB [Concomitant]
  8. DIGOXIN [Concomitant]
  9. CARVEDILOL [Concomitant]
  10. SPIRONOLACTONE [Concomitant]
  11. FUROSEMIDE [Concomitant]
  12. LISINOPRIL [Concomitant]
  13. ASPIRIN [Concomitant]
  14. LEVOTHYROXINE SODIUM [Concomitant]

REACTIONS (4)
  - ABDOMINAL DISTENSION [None]
  - FATIGUE [None]
  - INTERNATIONAL NORMALISED RATIO DECREASED [None]
  - INTERNATIONAL NORMALISED RATIO INCREASED [None]
